FAERS Safety Report 5787079-X (Version None)
Quarter: 2008Q2

REPORT INFORMATION
  Report Type: 
  Country: None (occurrence: None)
  Receive Date: 20080623
  Receipt Date: 20080623
  Transmission Date: 20081010
  Serious: Yes (Other)
  Sender: FDA-Public Use
  Company Number: None

PATIENT
  Age: 42 Year
  Sex: Male
  Weight: 108.8633 kg

DRUGS (5)
  1. PRIALT [Suspect]
     Indication: COMPLEX REGIONAL PAIN SYNDROME
     Dosage: 13.+ MCG/24HRS CONTINOUS IT
     Route: 037
     Dates: start: 20070801, end: 20080622
  2. PRIALT [Suspect]
     Indication: INADEQUATE ANALGESIA
     Dosage: 13.+ MCG/24HRS CONTINOUS IT
     Route: 037
     Dates: start: 20070801, end: 20080622
  3. MORPHINE [Concomitant]
  4. DILAUDID [Concomitant]
  5. BACLOFEN [Concomitant]

REACTIONS (11)
  - ABNORMAL BEHAVIOUR [None]
  - AMNESIA [None]
  - ANOREXIA [None]
  - APHASIA [None]
  - GAIT DISTURBANCE [None]
  - INSOMNIA [None]
  - MUSCLE TWITCHING [None]
  - PERSONALITY CHANGE [None]
  - SLEEP ATTACKS [None]
  - THINKING ABNORMAL [None]
  - TINNITUS [None]
